FAERS Safety Report 17453805 (Version 1)
Quarter: 2020Q1

REPORT INFORMATION
  Report Type: Report from Study
  Country: None (occurrence: GB)
  Receive Date: 20200224
  Receipt Date: 20200224
  Transmission Date: 20200409
  Serious: Yes (Life-Threatening, Hospitalization)
  Sender: FDA-Public Use
  Company Number: GB-ABBVIE-19P-167-2953876-00

PATIENT
  Age: 46 Year
  Sex: Male
  Weight: 60.7 kg

DRUGS (24)
  1. VENETOCLAX. [Suspect]
     Active Substance: VENETOCLAX
     Route: 048
     Dates: start: 20190626, end: 20190626
  2. ALVOCIDIB [Suspect]
     Active Substance: ALVOCIDIB
     Dosage: DAYS 1-3 OF 28 DAY CYCLE
     Route: 042
     Dates: start: 20190627
  3. LOPERMIDE [Concomitant]
     Indication: GASTROINTESTINAL DISORDER PROPHYLAXIS
     Route: 048
     Dates: start: 20190624, end: 20190630
  4. LEVOFLOXACIN. [Concomitant]
     Active Substance: LEVOFLOXACIN
     Indication: PROPHYLAXIS
     Route: 048
     Dates: start: 20190624
  5. CALCIUM CARBONATE. [Concomitant]
     Active Substance: CALCIUM CARBONATE
     Route: 048
     Dates: start: 20190625, end: 20190625
  6. SULFAMETHOXAZOLE [Concomitant]
     Active Substance: SULFAMETHOXAZOLE
     Indication: ANTIFUNGAL PROPHYLAXIS
     Route: 048
     Dates: start: 20190624
  7. VENETOCLAX. [Suspect]
     Active Substance: VENETOCLAX
     Indication: ACUTE MYELOID LEUKAEMIA
     Route: 048
     Dates: start: 20190624, end: 20190624
  8. ALVOCIDIB [Suspect]
     Active Substance: ALVOCIDIB
     Indication: ACUTE MYELOID LEUKAEMIA
     Dosage: DAYS 1-3 OF 28 DAY CYCLE
     Route: 042
     Dates: start: 20190624, end: 20190624
  9. ALVOCIDIB [Suspect]
     Active Substance: ALVOCIDIB
     Dosage: DAYS 1-3 OF 28 DAY CYCLE
     Route: 042
     Dates: start: 20190626, end: 20190626
  10. TRIMETHOPRIM. [Concomitant]
     Active Substance: TRIMETHOPRIM
     Indication: ANTIFUNGAL PROPHYLAXIS
     Route: 048
     Dates: start: 20190624
  11. PARACETAMOL [Concomitant]
     Active Substance: ACETAMINOPHEN
     Indication: PAIN PROPHYLAXIS
     Route: 048
     Dates: start: 20190624
  12. ONDANSETRON [Concomitant]
     Active Substance: ONDANSETRON
     Indication: PROPHYLAXIS OF NAUSEA AND VOMITING
     Route: 048
     Dates: start: 20190624
  13. RANITIDINE. [Concomitant]
     Active Substance: RANITIDINE
     Indication: PROPHYLAXIS
     Route: 048
     Dates: start: 20190624
  14. ALLOPURINOL. [Concomitant]
     Active Substance: ALLOPURINOL
     Indication: PROPHYLAXIS
     Route: 048
     Dates: start: 20190630, end: 20190711
  15. RASBURICASE [Concomitant]
     Active Substance: RASBURICASE
     Indication: PROPHYLAXIS
     Route: 048
     Dates: start: 20190624, end: 20190627
  16. GLUCOSE 4% SODIUM CHLORIDE 0.18% [Concomitant]
     Indication: PROPHYLAXIS
     Route: 042
     Dates: start: 20190623, end: 20190623
  17. ACICLOVIR [Concomitant]
     Active Substance: ACYCLOVIR
     Indication: INFECTION PROPHYLAXIS
     Route: 048
     Dates: start: 20190624
  18. METOCLOPRAMIDE. [Concomitant]
     Active Substance: METOCLOPRAMIDE
     Indication: PROPHYLAXIS OF NAUSEA AND VOMITING
     Route: 048
     Dates: start: 20190624, end: 20190628
  19. METOCLOPRAMIDE. [Concomitant]
     Active Substance: METOCLOPRAMIDE
     Route: 042
     Dates: start: 20190626
  20. CALCIUM CARBONATE. [Concomitant]
     Active Substance: CALCIUM CARBONATE
     Indication: PROPHYLAXIS
     Route: 048
     Dates: start: 20190623, end: 20190624
  21. CYCLIZINE HYDROCHLORIDE [Concomitant]
     Active Substance: CYCLIZINE HYDROCHLORIDE
     Indication: PROPHYLAXIS OF NAUSEA AND VOMITING
     Route: 048
     Dates: start: 20190624
  22. VENETOCLAX. [Suspect]
     Active Substance: VENETOCLAX
     Route: 048
     Dates: start: 20190627
  23. GLUCOSE 4% SODIUM CHLORIDE 0.18% [Concomitant]
     Route: 042
     Dates: start: 20190624, end: 20190628
  24. SODIUM CHLORIDE 0.9% MOUTHWASH [Concomitant]
     Indication: PROPHYLAXIS
     Route: 048
     Dates: start: 20190624

REACTIONS (1)
  - Febrile neutropenia [Recovered/Resolved]

NARRATIVE: CASE EVENT DATE: 20190625
